FAERS Safety Report 6002588-6 (Version None)
Quarter: 2008Q4

REPORT INFORMATION
  Report Type: 
  Country: None (occurrence: None)
  Receive Date: 20081215
  Receipt Date: 20071119
  Transmission Date: 20090506
  Serious: No
  Sender: FDA-Public Use
  Company Number: US-AMGEN-KDL253254

PATIENT
  Sex: Female

DRUGS (1)
  1. ENBREL [Suspect]
     Indication: ANKYLOSING SPONDYLITIS
     Route: 058
     Dates: start: 20070101

REACTIONS (8)
  - ANKYLOSING SPONDYLITIS [None]
  - ARTHRALGIA [None]
  - CARPAL TUNNEL SYNDROME [None]
  - DRUG ADMINISTRATION ERROR [None]
  - HYPERSOMNIA [None]
  - INJECTION SITE PAIN [None]
  - NEURALGIA [None]
  - THERAPEUTIC RESPONSE DECREASED [None]
